FAERS Safety Report 16034355 (Version 1)
Quarter: 2019Q1

REPORT INFORMATION
  Report Type: Spontaneous
  Country: US (occurrence: US)
  Receive Date: 20190205
  Receipt Date: 20190205
  Transmission Date: 20190418
  Serious: Yes (Hospitalization)
  Sender: FDA-Public Use
  Company Number: None

PATIENT
  Age: 13 Month
  Sex: Male
  Weight: 8.4 kg

DRUGS (3)
  1. ZINECARD [Concomitant]
     Active Substance: DEXRAZOXANE HYDROCHLORIDE
     Dates: end: 20190118
  2. DOXORUBICIN HYDROCHLORIDE. [Suspect]
     Active Substance: DOXORUBICIN HYDROCHLORIDE
     Dates: end: 20190118
  3. CISPLATIN (119875) [Suspect]
     Active Substance: CISPLATIN
     Dates: end: 20190117

REACTIONS (3)
  - Neutrophil count decreased [None]
  - Vomiting [None]
  - Hypomagnesaemia [None]

NARRATIVE: CASE EVENT DATE: 20190124
